FAERS Safety Report 19958685 (Version 1)
Quarter: 2021Q4

REPORT INFORMATION
  Report Type: Spontaneous
  Country: US (occurrence: US)
  Receive Date: 20211012
  Receipt Date: 20211012
  Transmission Date: 20220303
  Serious: Yes (Hospitalization)
  Sender: FDA-Public Use
  Company Number: None

PATIENT
  Age: 73 Year
  Sex: Male
  Weight: 126.55 kg

DRUGS (1)
  1. HYDRALAZINE [Suspect]
     Active Substance: HYDRALAZINE HYDROCHLORIDE
     Indication: Cardiac failure
     Route: 048
     Dates: start: 20210226, end: 20210304

REACTIONS (12)
  - Respiratory failure [None]
  - Lung consolidation [None]
  - Atrial flutter [None]
  - Tachycardia [None]
  - Eosinophilia [None]
  - Rash morbilliform [None]
  - Rash pruritic [None]
  - Pyrexia [None]
  - Leukocytosis [None]
  - Drug hypersensitivity [None]
  - Hypersensitivity pneumonitis [None]
  - Respiratory depression [None]

NARRATIVE: CASE EVENT DATE: 20210302
